FAERS Safety Report 4975903-X (Version None)
Quarter: 2006Q2

REPORT INFORMATION
  Report Type: 
  Country: None (occurrence: None)
  Receive Date: 20060412
  Receipt Date: 20060331
  Transmission Date: 20061013
  Serious: Yes (Life-Threatening, Hospitalization)
  Sender: FDA-Public Use
  Company Number: S06-FRA-01316-01

PATIENT
  Age: 45 Year
  Sex: Female

DRUGS (3)
  1. SEROPLEX (ESCITALOPRAM) [Suspect]
     Dosage: 1 TABLET ONCE PO
     Route: 048
     Dates: start: 20060318, end: 20060318
  2. LEXOMIL (BROMAZEPAM) [Suspect]
     Dosage: 15 TABLET ONCE PO
     Route: 048
     Dates: start: 20060318, end: 20060318
  3. ALCOHOL [Suspect]
     Dates: start: 20060318, end: 20060318

REACTIONS (3)
  - COMA [None]
  - MULTIPLE DRUG OVERDOSE [None]
  - SUICIDE ATTEMPT [None]
